FAERS Safety Report 9928817 (Version 1)
Quarter: 2014Q1

REPORT INFORMATION
  Report Type: Spontaneous
  Country: US (occurrence: US)
  Receive Date: 20140227
  Receipt Date: 20140227
  Transmission Date: 20141002
  Serious: No
  Sender: FDA-Public Use
  Company Number: US-009507513-1402USA012594

PATIENT
  Sex: Female

DRUGS (2)
  1. CLARITIN [Suspect]
     Indication: HYPERSENSITIVITY
     Route: 048
  2. CLARINEX [Suspect]
     Indication: HYPERSENSITIVITY
     Route: 048

REACTIONS (1)
  - Drug ineffective [Unknown]
